FAERS Safety Report 8593948 (Version 3)
Quarter: 2012Q4

REPORT INFORMATION
  Report Type: 
  Country: CO (occurrence: CO)
  Receive Date: 20120604
  Receipt Date: 20120907
  Transmission Date: 20130627
  Serious: Yes (Other)
  Sender: FDA-Public Use
  Company Number: CO-PFIZER INC-2012131392

PATIENT
  Age: 13 Year
  Sex: Male

DRUGS (2)
  1. GENOTROPIN [Suspect]
     Indication: BODY HEIGHT BELOW NORMAL
     Dosage: UNK
     Dates: start: 201202
  2. GENOTROPIN [Suspect]
     Dosage: UNK
     Dates: start: 20120523

REACTIONS (1)
  - Bronchopneumonia [Recovered/Resolved]
